FAERS Safety Report 9130253 (Version 1)
Quarter: 2013Q1

REPORT INFORMATION
  Report Type: Spontaneous
  Country: US (occurrence: US)
  Receive Date: 20130228
  Receipt Date: 20130228
  Transmission Date: 20140127
  Serious: No
  Sender: FDA-Public Use
  Company Number: US-009507513-1302USA010432

PATIENT
  Age: 30 Year
  Sex: Male

DRUGS (2)
  1. SAPHRIS [Suspect]
     Dosage: 10 MG, BID
     Route: 060
  2. SEROQUEL [Concomitant]

REACTIONS (2)
  - Concussion [Recovered/Resolved]
  - Blepharospasm [Recovered/Resolved]
